FAERS Safety Report 11232269 (Version 3)
Quarter: 2015Q4

REPORT INFORMATION
  Report Type: Spontaneous
  Country: IE (occurrence: IE)
  Receive Date: 20150701
  Receipt Date: 20151104
  Transmission Date: 20160304
  Serious: Yes (Other)
  Sender: FDA-Public Use
  Company Number: IE-BAXTER-2015BAX034989

PATIENT
  Sex: Female

DRUGS (6)
  1. CEFTAZIDIME. [Suspect]
     Active Substance: CEFTAZIDIME
     Indication: PULMONARY HAEMORRHAGE
     Route: 065
     Dates: start: 20150623
  2. CEFTAZIDIME. [Suspect]
     Active Substance: CEFTAZIDIME
     Route: 065
     Dates: start: 201503
  3. TOBRAMYCIN. [Suspect]
     Active Substance: TOBRAMYCIN
     Indication: PULMONARY HAEMORRHAGE
     Route: 065
     Dates: start: 20150623
  4. SODIUM CHLORIDE 0.9% INTRAVENOUS INFUSION BP [Suspect]
     Active Substance: SODIUM CHLORIDE
     Indication: PULMONARY HAEMORRHAGE
     Route: 065
     Dates: start: 201503
  5. SODIUM CHLORIDE 0.9% INTRAVENOUS INFUSION BP [Suspect]
     Active Substance: SODIUM CHLORIDE
     Indication: MEDICATION DILUTION
     Route: 065
     Dates: start: 20150623
  6. TOBRAMYCIN. [Suspect]
     Active Substance: TOBRAMYCIN
     Route: 065
     Dates: start: 201503

REACTIONS (1)
  - Urticaria [Unknown]
